FAERS Safety Report 20181917 (Version 1)
Quarter: 2021Q4

REPORT INFORMATION
  Report Type: Spontaneous
  Country: CA (occurrence: CA)
  Receive Date: 20211214
  Receipt Date: 20211214
  Transmission Date: 20220303
  Serious: Yes (Death, Hospitalization, Other)
  Sender: FDA-Public Use
  Company Number: None

PATIENT
  Age: 91 Year
  Sex: Female

DRUGS (3)
  1. ATENOLOL [Suspect]
     Active Substance: ATENOLOL
     Indication: Atrial fibrillation
     Dosage: 50.0MG UNKNOWN
     Route: 048
  2. ELIQUIS [Suspect]
     Active Substance: APIXABAN
     Indication: Cerebrovascular accident prophylaxis
     Dosage: 5.0MG UNKNOWN
     Route: 048
  3. COVID-19 VACCINE NOS [Suspect]
     Active Substance: COVID-19 VACCINE NOS
     Indication: COVID-19 immunisation
     Dosage: ONCE/SINGLE ADMINISTRATION
     Route: 065

REACTIONS (10)
  - Cerebral haemorrhage [Fatal]
  - Cerebrovascular accident [Fatal]
  - Chills [Fatal]
  - Craniocerebral injury [Fatal]
  - Fall [Fatal]
  - Haemorrhagic stroke [Fatal]
  - Pyrexia [Fatal]
  - Subarachnoid haemorrhage [Fatal]
  - Subdural haemorrhage [Fatal]
  - Vomiting [Fatal]
